FAERS Safety Report 24073374 (Version 2)
Quarter: 2024Q3

REPORT INFORMATION
  Report Type: Spontaneous
  Country: DE (occurrence: DE)
  Receive Date: 20240710
  Receipt Date: 20240815
  Transmission Date: 20241017
  Serious: Yes (Life-Threatening)
  Sender: ELI LILLY AND CO
  Company Number: DE-GILEAD-2024-0679244

PATIENT
  Sex: Male
  Weight: 90 kg

DRUGS (22)
  1. PEMETREXED [Suspect]
     Active Substance: PEMETREXED
     Indication: Non-small cell lung cancer metastatic
     Dosage: 1020 MG, UNKNOWN
     Route: 042
     Dates: start: 20240327, end: 20240327
  2. PEMETREXED [Suspect]
     Active Substance: PEMETREXED
     Dosage: 750 MG, UNKNOWN
     Route: 042
     Dates: start: 20240417, end: 20240417
  3. PEMETREXED [Suspect]
     Active Substance: PEMETREXED
     Dosage: 750 MG, UNKNOWN
     Route: 042
     Dates: start: 20240610
  4. ZIMBERELIMAB [Suspect]
     Active Substance: ZIMBERELIMAB
     Indication: Non-small cell lung cancer metastatic
     Dosage: 360 MG, UNKNOWN
     Route: 042
     Dates: start: 20240327, end: 20240327
  5. ZIMBERELIMAB [Suspect]
     Active Substance: ZIMBERELIMAB
     Dosage: 360 MG, UNKNOWN
     Route: 042
     Dates: start: 20240417, end: 20240417
  6. ZIMBERELIMAB [Suspect]
     Active Substance: ZIMBERELIMAB
     Dosage: 360 MG, UNKNOWN
     Route: 042
     Dates: start: 20240515, end: 20240515
  7. ZIMBERELIMAB [Suspect]
     Active Substance: ZIMBERELIMAB
     Dosage: 360 MG, UNKNOWN
     Route: 042
     Dates: start: 20240610, end: 20240610
  8. ZIMBERELIMAB [Suspect]
     Active Substance: ZIMBERELIMAB
     Dosage: 360 MG, UNKNOWN
     Route: 042
     Dates: start: 20240730
  9. CARBOPLATIN [Suspect]
     Active Substance: CARBOPLATIN
     Indication: Non-small cell lung cancer metastatic
     Dosage: 534 MG, UNKNOWN
     Route: 042
     Dates: start: 20240327, end: 20240327
  10. CARBOPLATIN [Suspect]
     Active Substance: CARBOPLATIN
     Dosage: 353 MG, UNKNOWN
     Route: 042
     Dates: start: 20240417, end: 20240417
  11. CARBOPLATIN [Suspect]
     Active Substance: CARBOPLATIN
     Dosage: 319.84 MG, UNKNOWN
     Route: 042
     Dates: start: 20240610
  12. CETIRIZINE HYDROCHLORIDE [Concomitant]
     Active Substance: CETIRIZINE HYDROCHLORIDE
     Indication: Rash
     Dosage: UNK
     Route: 048
     Dates: start: 20240404, end: 20240505
  13. PREDNISOLONE [Concomitant]
     Active Substance: PREDNISOLONE
     Indication: Rash
     Route: 062
     Dates: start: 20240404, end: 20240505
  14. ASPIRIN [Concomitant]
     Active Substance: ASPIRIN
     Indication: Coronary artery disease
     Route: 048
     Dates: start: 2012
  15. CANDESARTAN [Concomitant]
     Active Substance: CANDESARTAN
     Indication: Hypertension
     Route: 048
     Dates: start: 2023
  16. ATORVASTATIN [Concomitant]
     Active Substance: ATORVASTATIN
     Indication: Prophylaxis
     Route: 048
     Dates: start: 2023
  17. AMOXICILLIN\CLAVULANATE POTASSIUM [Concomitant]
     Active Substance: AMOXICILLIN\CLAVULANATE POTASSIUM
     Indication: Respiratory tract infection
     Route: 048
     Dates: start: 20240408, end: 20240410
  18. AMOXICILLIN\CLAVULANATE POTASSIUM [Concomitant]
     Active Substance: AMOXICILLIN\CLAVULANATE POTASSIUM
     Indication: C-reactive protein increased
  19. METOPROLOL [Concomitant]
     Active Substance: METOPROLOL
     Indication: Hypertension
     Route: 048
     Dates: start: 2012
  20. PANTOPRAZOLE [Concomitant]
     Active Substance: PANTOPRAZOLE
     Indication: Prophylaxis
     Route: 048
     Dates: start: 2012
  21. TAMSULOSIN [Concomitant]
     Active Substance: TAMSULOSIN
     Indication: Benign prostatic hyperplasia
     Dosage: UNK
     Route: 048
     Dates: start: 2017, end: 20240405
  22. FOLIC ACID [Concomitant]
     Active Substance: FOLIC ACID
     Indication: Prophylaxis
     Dosage: UNK
     Route: 048
     Dates: start: 2024

REACTIONS (1)
  - Neutropenia [Recovered/Resolved]

NARRATIVE: CASE EVENT DATE: 20240408
